FAERS Safety Report 8256566-7 (Version None)
Quarter: 2012Q2

REPORT INFORMATION
  Report Type: 
  Country: None (occurrence: None)
  Receive Date: 20120403
  Receipt Date: 20120329
  Transmission Date: 20120825
  Serious: Yes (Hospitalization, Other)
  Sender: FDA-Public Use
  Company Number: JP-PFIZER INC-2011158744

PATIENT
  Age: 54 Year
  Sex: Male
  Weight: 50 kg

DRUGS (8)
  1. IRRIBOW [Suspect]
     Dosage: UNK
     Route: 048
     Dates: start: 20101108, end: 20110615
  2. HALCION [Concomitant]
     Dosage: UNK
     Route: 048
     Dates: end: 20110616
  3. ZOLOFT [Suspect]
     Dosage: 50 MG/DAY
     Route: 048
     Dates: end: 20110612
  4. ABILIT [Suspect]
     Dosage: UNK
     Route: 048
     Dates: end: 20110615
  5. ZOLOFT [Suspect]
     Indication: DEPRESSION
     Dosage: 25 MG/DAY
     Route: 048
     Dates: start: 20101011
  6. LENDORMIN [Concomitant]
     Dosage: UNK
     Route: 048
  7. U-PAN [Concomitant]
     Dosage: UNK
     Route: 048
     Dates: end: 20110615
  8. AMLODIPINE BESILATE [Concomitant]
     Dosage: UNK
     Route: 048
     Dates: end: 20110616

REACTIONS (1)
  - HEPATITIS FULMINANT [None]
